FAERS Safety Report 8866551 (Version 1)
Quarter: 2012Q4

REPORT INFORMATION
  Report Type: 
  Country: US (occurrence: US)
  Receive Date: 20121025
  Receipt Date: 20121025
  Transmission Date: 20130627
  Serious: No
  Sender: FDA-Public Use
  Company Number: US-ASTRAZENECA-2012SE08775

PATIENT
  Age: 63 Year
  Sex: Male
  Weight: 88 kg

DRUGS (8)
  1. METOPROLOL [Suspect]
     Route: 048
  2. CRESTOR [Suspect]
     Indication: BLOOD CHOLESTEROL
     Route: 048
  3. CRESTOR [Suspect]
     Indication: BLOOD CHOLESTEROL
     Route: 048
  4. CRESTOR [Suspect]
     Indication: BLOOD CHOLESTEROL
     Route: 048
  5. OTHER MEDICATION [Concomitant]
  6. LISINOPRIL [Concomitant]
  7. NISASPAN [Concomitant]
  8. PLAVIX [Concomitant]

REACTIONS (4)
  - Arthritis [Unknown]
  - Bacterial infection [Unknown]
  - Pain in extremity [Unknown]
  - Arthralgia [Unknown]
